FAERS Safety Report 5793268-0 (Version None)
Quarter: 2008Q2

REPORT INFORMATION
  Report Type: 
  Country: None (occurrence: None)
  Receive Date: 20080626
  Receipt Date: 20080626
  Transmission Date: 20081010
  Serious: Yes (Other)
  Sender: FDA-Public Use
  Company Number: None

PATIENT
  Age: 47 Year
  Sex: Female
  Weight: 96 kg

DRUGS (1)
  1. CRESTOR [Suspect]
     Indication: BLOOD CHOLESTEROL INCREASED
     Dosage: 10MG ONCE A DAY PO
     Route: 048
     Dates: start: 20080520, end: 20080617

REACTIONS (3)
  - JOINT STIFFNESS [None]
  - MUSCLE SPASMS [None]
  - PAIN IN EXTREMITY [None]
